FAERS Safety Report 4891125-5 (Version None)
Quarter: 2006Q1

REPORT INFORMATION
  Report Type: 
  Country: None (occurrence: None)
  Receive Date: 20060125
  Receipt Date: 20051017
  Transmission Date: 20060701
  Serious: Yes (Hospitalization, Disabling)
  Sender: FDA-Public Use
  Company Number: US-MERCK-0510USA07812

PATIENT
  Age: 41 Year
  Sex: Male
  Weight: 70 kg

DRUGS (7)
  1. VIOXX [Suspect]
     Indication: CARPAL TUNNEL SYNDROME
     Route: 048
     Dates: start: 19990101, end: 20040930
  2. VIOXX [Suspect]
     Route: 048
     Dates: start: 20040101, end: 20040930
  3. NITRO-TABL [Concomitant]
     Route: 065
  4. SYNTHROID [Concomitant]
     Route: 065
  5. CYCLOBENZAPRINE HYDROCHLORIDE [Concomitant]
     Route: 065
  6. LEVOTHYROXINE SODIUM [Concomitant]
     Route: 065
  7. PROZAC [Concomitant]
     Indication: DEPRESSION
     Route: 065
     Dates: start: 20010901, end: 20030701

REACTIONS (12)
  - ACUTE MYOCARDIAL INFARCTION [None]
  - ANGINA UNSTABLE [None]
  - BLOOD CHOLESTEROL INCREASED [None]
  - CARDIAC FAILURE CONGESTIVE [None]
  - CORONARY ARTERY DISEASE [None]
  - DEPRESSION [None]
  - HYPERTENSION [None]
  - INTERVERTEBRAL DISC DEGENERATION [None]
  - INTERVERTEBRAL DISC PROTRUSION [None]
  - ISCHAEMIC CARDIOMYOPATHY [None]
  - LIMB DISCOMFORT [None]
  - SPINAL CORD DISORDER [None]
